FAERS Safety Report 14309010 (Version 2)
Quarter: 2018Q1

REPORT INFORMATION
  Report Type: Spontaneous
  Country: US (occurrence: US)
  Receive Date: 20171220
  Receipt Date: 20180320
  Transmission Date: 20180509
  Serious: Yes (Hospitalization, Other)
  Sender: FDA-Public Use
  Company Number: US-JNJFOC-20171224226

PATIENT
  Age: 38 Year
  Sex: Male

DRUGS (2)
  1. INVOKANA [Suspect]
     Active Substance: CANAGLIFLOZIN
     Indication: TYPE 2 DIABETES MELLITUS
     Route: 048
     Dates: start: 201505
  2. INVOKANA [Suspect]
     Active Substance: CANAGLIFLOZIN
     Indication: TYPE 2 DIABETES MELLITUS
     Route: 048
     Dates: start: 20150630

REACTIONS (5)
  - Osteomyelitis [Unknown]
  - Leg amputation [Unknown]
  - Toe amputation [Unknown]
  - Cellulitis [Unknown]
  - Diabetic ulcer [Unknown]

NARRATIVE: CASE EVENT DATE: 20151008
